FAERS Safety Report 23387027 (Version 10)
Quarter: 2025Q1

REPORT INFORMATION
  Report Type: Report from Study
  Country: CA (occurrence: CA)
  Receive Date: 20240110
  Receipt Date: 20250117
  Transmission Date: 20250409
  Serious: Yes (Hospitalization, Other)
  Sender: TAKEDA
  Company Number: CA-TAKEDA-2023TUS090746

PATIENT
  Age: 57 Year
  Sex: Female

DRUGS (23)
  1. VEDOLIZUMAB [Suspect]
     Active Substance: VEDOLIZUMAB
     Indication: Colitis ulcerative
  2. VEDOLIZUMAB [Suspect]
     Active Substance: VEDOLIZUMAB
     Indication: Crohn^s disease
     Dosage: 300 MILLIGRAM, Q4WEEKS
     Dates: start: 20230302
  3. VEDOLIZUMAB [Suspect]
     Active Substance: VEDOLIZUMAB
     Dosage: 300 MILLIGRAM, Q4WEEKS
  4. VEDOLIZUMAB [Suspect]
     Active Substance: VEDOLIZUMAB
     Dosage: 300 MILLIGRAM, Q4WEEKS
  5. VEDOLIZUMAB [Suspect]
     Active Substance: VEDOLIZUMAB
     Dosage: 300 MILLIGRAM, Q4WEEKS
  6. VEDOLIZUMAB [Suspect]
     Active Substance: VEDOLIZUMAB
     Dosage: 300 MILLIGRAM, Q4WEEKS
  7. VEDOLIZUMAB [Suspect]
     Active Substance: VEDOLIZUMAB
     Dosage: 300 MILLIGRAM, Q4WEEKS
  8. VEDOLIZUMAB [Suspect]
     Active Substance: VEDOLIZUMAB
     Dosage: 300 MILLIGRAM, Q4WEEKS
  9. VEDOLIZUMAB [Suspect]
     Active Substance: VEDOLIZUMAB
     Dosage: 300 MILLIGRAM, Q4WEEKS
  10. TRYPTOPHAN [Concomitant]
     Active Substance: TRYPTOPHAN
  11. ESCITALOPRAM [Concomitant]
     Active Substance: ESCITALOPRAM OXALATE
  12. LAMOTRIGINE [Concomitant]
     Active Substance: LAMOTRIGINE
  13. DIAZEPAM [Concomitant]
     Active Substance: DIAZEPAM
  14. GABAPENTIN [Concomitant]
     Active Substance: GABAPENTIN
  15. MIRTAZAPINE [Concomitant]
     Active Substance: MIRTAZAPINE
  16. OLANZAPINE [Concomitant]
     Active Substance: OLANZAPINE
  17. PANTOPRAZOLE MAGNESIUM [Concomitant]
     Active Substance: PANTOPRAZOLE MAGNESIUM
  18. TRINTELLIX [Concomitant]
     Active Substance: VORTIOXETINE HYDROBROMIDE
  19. SYNTHROID [Concomitant]
     Active Substance: LEVOTHYROXINE SODIUM
  20. LIOTHYRONINE [Concomitant]
     Active Substance: LIOTHYRONINE
  21. AZATHIOPRINE [Concomitant]
     Active Substance: AZATHIOPRINE
  22. PREDNISONE [Concomitant]
     Active Substance: PREDNISONE
  23. IMURAN [Concomitant]
     Active Substance: AZATHIOPRINE

REACTIONS (13)
  - Loss of consciousness [Unknown]
  - Sepsis [Recovered/Resolved with Sequelae]
  - Pneumonia [Recovered/Resolved]
  - Bronchitis [Recovered/Resolved]
  - Diarrhoea [Unknown]
  - Fall [Unknown]
  - Head injury [Unknown]
  - Malaise [Unknown]
  - Respiratory tract congestion [Unknown]
  - Product dose omission issue [Recovered/Resolved with Sequelae]
  - Off label use [Unknown]
  - Cough [Unknown]
  - Asthma [Recovered/Resolved]

NARRATIVE: CASE EVENT DATE: 20230302
